FAERS Safety Report 14093314 (Version 4)
Quarter: 2017Q4

REPORT INFORMATION
  Report Type: Report from Study
  Country: US (occurrence: US)
  Receive Date: 20171016
  Receipt Date: 20171130
  Transmission Date: 20180321
  Serious: Yes (Hospitalization, Other)
  Sender: FDA-Public Use
  Company Number: US-JNJFOC-20170912556

PATIENT
  Age: 74 Year
  Sex: Female

DRUGS (19)
  1. CEFTRIAXONE. [Concomitant]
     Active Substance: CEFTRIAXONE
  2. OXYBUTYNIN CHLORIDE. [Concomitant]
     Active Substance: OXYBUTYNIN CHLORIDE
  3. ICY HOT [Concomitant]
     Active Substance: MENTHOL\METHYL SALICYLATE
  4. MELATONIN [Concomitant]
     Active Substance: MELATONIN
  5. OMEPRAZOLE. [Concomitant]
     Active Substance: OMEPRAZOLE
  6. IMBRUVICA [Suspect]
     Active Substance: IBRUTINIB
     Indication: CHRONIC LYMPHOCYTIC LEUKAEMIA
     Route: 048
     Dates: start: 20170901
  7. LEVETIRACETAM. [Concomitant]
     Active Substance: LEVETIRACETAM
  8. ONDANSETRON [Concomitant]
     Active Substance: ONDANSETRON
  9. ZYRTEC [Concomitant]
     Active Substance: CETIRIZINE HYDROCHLORIDE
  10. PROAIR HFA [Concomitant]
     Active Substance: ALBUTEROL SULFATE
  11. ASPIRIN. [Concomitant]
     Active Substance: ASPIRIN
  12. IMBRUVICA [Suspect]
     Active Substance: IBRUTINIB
     Indication: CHRONIC LYMPHOCYTIC LEUKAEMIA
     Route: 048
     Dates: start: 20170907
  13. LEVOTHYROXINE SODIUM. [Concomitant]
     Active Substance: LEVOTHYROXINE SODIUM
  14. MULTIVITAMINS [Concomitant]
     Active Substance: VITAMINS
  15. ENOXAPARIN [Concomitant]
     Active Substance: ENOXAPARIN
  16. PROCHLORPERAZINE. [Concomitant]
     Active Substance: PROCHLORPERAZINE
  17. FLUTICASONE PROPRIONATE [Concomitant]
     Active Substance: FLUTICASONE PROPIONATE
  18. FLOVENT [Concomitant]
     Active Substance: FLUTICASONE PROPIONATE
  19. SIMVASTATIN. [Concomitant]
     Active Substance: SIMVASTATIN

REACTIONS (7)
  - Vomiting [Recovered/Resolved]
  - Drug dose omission [Unknown]
  - Nausea [Recovered/Resolved]
  - Haemorrhage [Recovering/Resolving]
  - Seasonal allergy [Not Recovered/Not Resolved]
  - Pyrexia [Recovered/Resolved]
  - Blood count abnormal [Unknown]

NARRATIVE: CASE EVENT DATE: 20170908
